FAERS Safety Report 25169035 (Version 1)
Quarter: 2025Q2

REPORT INFORMATION
  Report Type: Spontaneous
  Country: SI (occurrence: SI)
  Receive Date: 20250407
  Receipt Date: 20250407
  Transmission Date: 20250717
  Serious: Yes (Hospitalization, Other)
  Sender: PFIZER
  Company Number: None

PATIENT
  Age: 69 Year
  Sex: Female

DRUGS (15)
  1. MEDROL [Suspect]
     Active Substance: METHYLPREDNISOLONE
     Indication: Chronic obstructive pulmonary disease
     Dosage: 32 MG, 1X/DAY (1X1)
     Route: 048
  2. FOSTER [Concomitant]
     Active Substance: BECLOMETHASONE\FORMOTEROL
     Indication: Chronic obstructive pulmonary disease
  3. PROMAZINE HYDROCHLORIDE [Concomitant]
     Active Substance: PROMAZINE HYDROCHLORIDE
     Indication: Depression
     Dosage: 25 MG, 1X/DAY (1 TBL IN THE EVENING, LONG TERM THERAPY)
  4. TIANEPTINE SODIUM [Concomitant]
     Active Substance: TIANEPTINE SODIUM
     Indication: Depression
     Dosage: 12.5 MG, 3X/DAY (FREQ:3X/ D; 3X1, LONG TERM THERAPY)
  5. LYRICA [Concomitant]
     Active Substance: PREGABALIN
     Indication: Spinal stenosis
     Dosage: 150 MG, ALTERNATE DAY (2X1, LONG TERM THERAPY)
  6. LYRICA [Concomitant]
     Active Substance: PREGABALIN
     Indication: Paraparesis
  7. TIZANIDINE [Concomitant]
     Active Substance: TIZANIDINE
     Indication: Spinal stenosis
     Dosage: 2 MG, 3X/DAY (FREQ:3X/ D; 3X1, LONG TERM THERAPY)
  8. TIZANIDINE [Concomitant]
     Active Substance: TIZANIDINE
     Indication: Paraparesis
  9. ASPIRIN [Concomitant]
     Active Substance: ASPIRIN
     Indication: Cerebrovascular accident
     Dosage: 100 MG, 1X/DAY (1X1, LONG TERM THERAPY)
  10. BOREZ [Concomitant]
     Indication: Hypertension
     Dosage: 5 MG, 1X/DAY (1X1, LONG TERM THERAPY)
  11. BIOPREXANIL [PERINDOPRIL ARGININE] [Concomitant]
     Indication: Hypertension
     Dosage: 5 MG, 1X/DAY (1X1, LONG TERM THERAPY)
  12. PANTOPRAZOLE SODIUM [Concomitant]
     Active Substance: PANTOPRAZOLE SODIUM
     Indication: Prophylaxis
     Dosage: 40 MG, 1X/DAY (1X1, LONG TERM THERAPY)
  13. AMOXICILLIN\CLAVULANATE POTASSIUM [Concomitant]
     Active Substance: AMOXICILLIN\CLAVULANATE POTASSIUM
     Route: 042
  14. FENOTEROL HYDROBROMIDE\IPRATROPIUM BROMIDE [Concomitant]
     Active Substance: FENOTEROL HYDROBROMIDE\IPRATROPIUM BROMIDE
  15. FUROSEMIDE [Concomitant]
     Active Substance: FUROSEMIDE

REACTIONS (2)
  - Steroid diabetes [Recovering/Resolving]
  - Off label use [Unknown]
